FAERS Safety Report 10972938 (Version 2)
Quarter: 2015Q2

REPORT INFORMATION
  Report Type: Spontaneous
  Country: US (occurrence: US)
  Receive Date: 20150331
  Receipt Date: 20150525
  Transmission Date: 20150821
  Serious: No
  Sender: FDA-Public Use
  Company Number: US-JNJFOC-20130806380

PATIENT
  Sex: Female

DRUGS (2)
  1. BENZODIAZEPINE NOS [Concomitant]
     Active Substance: BENZODIAZEPINE
     Indication: SLEEP DISORDER THERAPY
     Route: 065
  2. RISPERDAL [Suspect]
     Active Substance: RISPERIDONE
     Indication: DELUSIONAL DISORDER, UNSPECIFIED TYPE
     Route: 048

REACTIONS (1)
  - Alopecia [Unknown]
